FAERS Safety Report 17763470 (Version 1)
Quarter: 2020Q2

REPORT INFORMATION
  Report Type: Spontaneous
  Country: ES (occurrence: ES)
  Receive Date: 20200509
  Receipt Date: 20200509
  Transmission Date: 20200714
  Serious: Yes (Other)
  Sender: FDA-Public Use
  Company Number: ES-TEVA-2020-ES-1231930

PATIENT
  Age: 56 Year
  Sex: Female

DRUGS (4)
  1. HIDROXICLOROQUINA (2143A) [Suspect]
     Active Substance: HYDROXYCHLOROQUINE
     Indication: PNEUMONIA
     Dosage: 400MG
     Route: 048
     Dates: start: 20200413, end: 20200421
  2. HIDROXICLOROQUINA (2143A) [Suspect]
     Active Substance: HYDROXYCHLOROQUINE
     Indication: CORONAVIRUS INFECTION
     Dosage: 2 COMP CADA 12 HORAS EL PRIMER D?A Y POSTERIORMENTE 2 COMP CADA 24 H,
     Route: 048
     Dates: start: 20200412, end: 20200412
  3. TOCILIZUMAB (8289A) [Suspect]
     Active Substance: TOCILIZUMAB
     Indication: PNEUMONIA
  4. TOCILIZUMAB (8289A) [Suspect]
     Active Substance: TOCILIZUMAB
     Indication: CORONAVIRUS INFECTION
     Dosage: 600 MG
     Route: 042
     Dates: start: 20200417, end: 20200417

REACTIONS (1)
  - Neutropenia [Recovering/Resolving]

NARRATIVE: CASE EVENT DATE: 20200418
